FAERS Safety Report 10233216 (Version 1)
Quarter: 2014Q2

REPORT INFORMATION
  Report Type: Spontaneous
  Country: JP (occurrence: None)
  Receive Date: 20140610
  Receipt Date: 20140610
  Transmission Date: 20141212
  Serious: Yes (Other)
  Sender: FDA-Public Use
  Company Number: JP-ALKEM-000599

PATIENT
  Age: 68 Year
  Sex: Male

DRUGS (4)
  1. MYCOPHENOLATE MOFETIL (MYCOPHENOLATE MOFETIL) [Suspect]
     Indication: RENAL TRANSPLANT
  2. TACROLIMUS (TACROLIMUS) [Suspect]
     Indication: RENAL TRANSPLANT
  3. EVEROLIMUS [Suspect]
     Indication: RENAL TRANSPLANT
  4. BASILIXIMAB (BASILIXIMAB) [Concomitant]

REACTIONS (6)
  - Nephropathy toxic [None]
  - Rash [None]
  - Dyspnoea [None]
  - Protein urine present [None]
  - Blood creatinine increased [None]
  - Renal injury [None]
